FAERS Safety Report 23638933 (Version 4)
Quarter: 2024Q2

REPORT INFORMATION
  Report Type: Report from Study
  Country: GB (occurrence: GB)
  Receive Date: 20240315
  Receipt Date: 20240402
  Transmission Date: 20240716
  Serious: Yes (Other)
  Sender: FDA-Public Use
  Company Number: GB-002147023-NVSC2023GB129385

PATIENT
  Age: 65 Year
  Sex: Female

DRUGS (4)
  1. MAYZENT [Suspect]
     Active Substance: SIPONIMOD
     Indication: Secondary progressive multiple sclerosis
     Dosage: 1.25 MG, QD
     Route: 048
     Dates: start: 20230605
  2. MAYZENT [Suspect]
     Active Substance: SIPONIMOD
     Dosage: 2 MG, QD
     Route: 048
  3. MAYZENT [Suspect]
     Active Substance: SIPONIMOD
     Dosage: 0.5 MG, QD (TITRATION DOSES 0.25, 0.25, 0.5, 0.75, 1.25)
     Route: 048
     Dates: start: 20240305
  4. MAYZENT [Suspect]
     Active Substance: SIPONIMOD
     Dosage: 2 MG QD (MAINTENANCE DOSE)
     Route: 048
     Dates: start: 20240305

REACTIONS (22)
  - Lower respiratory tract infection [Not Recovered/Not Resolved]
  - Productive cough [Not Recovered/Not Resolved]
  - Somnolence [Unknown]
  - Speech disorder [Unknown]
  - Dry mouth [Unknown]
  - Lethargy [Unknown]
  - Rash [Unknown]
  - Oral pain [Unknown]
  - Breast tenderness [Unknown]
  - Dry eye [Unknown]
  - Eye pruritus [Unknown]
  - Headache [Recovered/Resolved with Sequelae]
  - Nausea [Recovered/Resolved with Sequelae]
  - Eyelid ptosis [Recovered/Resolved with Sequelae]
  - Malaise [Not Recovered/Not Resolved]
  - Hyperhidrosis [Not Recovered/Not Resolved]
  - Feeling cold [Not Recovered/Not Resolved]
  - Dyspnoea [Not Recovered/Not Resolved]
  - Fatigue [Not Recovered/Not Resolved]
  - Headache [Unknown]
  - Neuralgia [Unknown]
  - Allodynia [Unknown]

NARRATIVE: CASE EVENT DATE: 20230605
